FAERS Safety Report 11982373 (Version 3)
Quarter: 2016Q3

REPORT INFORMATION
  Report Type: Spontaneous
  Country: US (occurrence: US)
  Receive Date: 20160201
  Receipt Date: 20160920
  Transmission Date: 20161109
  Serious: Yes (Hospitalization, Other)
  Sender: FDA-Public Use
  Company Number: US-009507513-1601USA011555

PATIENT
  Sex: Female
  Weight: 49.89 kg

DRUGS (2)
  1. NUVARING [Suspect]
     Active Substance: ETHINYL ESTRADIOL\ETONOGESTREL
     Indication: CONTRACEPTION
     Dosage: 0.015-0.12MG/24 HR
     Route: 067
     Dates: start: 20130930, end: 20140204
  2. IBUPROFEN. [Concomitant]
     Active Substance: IBUPROFEN
     Indication: DYSMENORRHOEA
     Route: 065

REACTIONS (5)
  - Iron deficiency [Unknown]
  - Deep vein thrombosis [Recovering/Resolving]
  - Venous thrombosis limb [Recovering/Resolving]
  - Pulmonary embolism [Recovering/Resolving]
  - Thrombophlebitis [Recovering/Resolving]

NARRATIVE: CASE EVENT DATE: 201402
